FAERS Safety Report 5579951-0 (Version None)
Quarter: 2008Q2

REPORT INFORMATION
  Report Type: 
  Country: None (occurrence: None)
  Receive Date: 20080103
  Receipt Date: 20080102
  Transmission Date: 20081010
  Serious: Yes (Death)
  Sender: FDA-Public Use
  Company Number: PHNR2007AU01420

PATIENT
  Age: 43 Year
  Sex: Male

DRUGS (8)
  1. CLOZARIL [Suspect]
     Indication: SCHIZOPHRENIA
     Dosage: 225 - 800 MG DAILY
     Route: 048
     Dates: start: 19931203, end: 20070703
  2. AMISULPRIDE [Suspect]
     Dosage: 200MG, BID
     Dates: start: 20020101
  3. ACTONEL WITH CALCIUM (COPACKAGED) [Suspect]
     Dosage: DAILY
     Dates: start: 20030101
  4. BISOPROLOL FUMARATE [Suspect]
     Dosage: 5MG MANE
     Dates: start: 20050101
  5. RAMIPRIL [Suspect]
     Dosage: 5MG MANE
     Dates: start: 20050101
  6. ZOLPIDEM [Suspect]
     Dosage: 10MG NOCTE
     Dates: start: 20050101
  7. SPIRIVA [Suspect]
     Dosage: DAILY
     Dates: start: 20050101
  8. ALBUTEROL SPIROS [Suspect]
     Dosage: TWO PUFFS, PRN
     Dates: start: 19980101

REACTIONS (2)
  - EMPHYSEMA [None]
  - RESPIRATORY ARREST [None]
